FAERS Safety Report 5832151-9 (Version None)
Quarter: 2008Q3

REPORT INFORMATION
  Report Type: 
  Country: None (occurrence: None)
  Receive Date: 20080731
  Receipt Date: 20080731
  Transmission Date: 20090109
  Serious: No
  Sender: FDA-Public Use
  Company Number: None

PATIENT
  Sex: Female
  Weight: 87 kg

DRUGS (2)
  1. BOWEL PREP KIT [Suspect]
     Indication: BOWEL PREPARATION
     Dates: start: 20080617, end: 20080617
  2. BOWEL PREP KIT [Suspect]
     Indication: COLONOSCOPY
     Dates: start: 20080617, end: 20080617

REACTIONS (4)
  - EYELID OEDEMA [None]
  - FACE OEDEMA [None]
  - LIP SWELLING [None]
  - SWELLING FACE [None]
